FAERS Safety Report 15768933 (Version 7)
Quarter: 2020Q4

REPORT INFORMATION
  Report Type: Report from Study
  Country: DE (occurrence: DE)
  Receive Date: 20181228
  Receipt Date: 20201121
  Transmission Date: 20210113
  Serious: Yes (Hospitalization)
  Sender: FDA-Public Use
  Company Number: DE-ROCHE-2233910

PATIENT
  Age: 59 Year
  Sex: Male
  Weight: 108 kg

DRUGS (4)
  1. VEMURAFENIB. [Suspect]
     Active Substance: VEMURAFENIB
     Dosage: ON 18/DEC/2018, MOST RECENT DOSE.
     Route: 048
     Dates: start: 20190102
  2. COBIMETINIB. [Suspect]
     Active Substance: COBIMETINIB
     Indication: METASTATIC MALIGNANT MELANOMA
     Dosage: DATE OF LAST DOSE OF COBIMETINIB ADMINISTERED PRIOR TO THE ONSET OF SAE ON 18/DEC/2018.
     Route: 048
     Dates: start: 20181107, end: 20181219
  3. VEMURAFENIB. [Suspect]
     Active Substance: VEMURAFENIB
     Indication: METASTATIC MALIGNANT MELANOMA
     Dosage: DATE OF LAST DOSE OF VEMURAFENIB ADMINISTERED PRIOR TO THE ONSET OF SAE ON 18/DEC/2018.
     Route: 048
     Dates: start: 20181107, end: 20181219
  4. COBIMETINIB. [Suspect]
     Active Substance: COBIMETINIB
     Route: 048
     Dates: start: 20190102

REACTIONS (6)
  - Illness [Not Recovered/Not Resolved]
  - Nausea [Not Recovered/Not Resolved]
  - Vomiting [Not Recovered/Not Resolved]
  - Dehydration [Not Recovered/Not Resolved]
  - Diarrhoea [Recovered/Resolved]
  - Gastritis [Recovered/Resolved]

NARRATIVE: CASE EVENT DATE: 20181216
